FAERS Safety Report 5487889-2 (Version None)
Quarter: 2007Q3

REPORT INFORMATION
  Report Type: 
  Country: None (occurrence: None)
  Receive Date: 20070925
  Receipt Date: 20070718
  Transmission Date: 20080115
  Serious: No
  Sender: FDA-Public Use
  Company Number: 2007US001391

PATIENT
  Age: 87 Year
  Sex: Female

DRUGS (8)
  1. VESICARE [Suspect]
     Indication: URINARY INCONTINENCE
     Dosage: 5 MG, UID/QD, ORAL
     Route: 048
     Dates: start: 20070615
  2. ZOCOR [Concomitant]
  3. ACIPHEX [Concomitant]
  4. DIOVAN [Concomitant]
  5. ADVAIR DISKUS 100/50 [Concomitant]
  6. EYE DROPS [Concomitant]
  7. OSTEOPOROSIS MEDICINE [Concomitant]
  8. THYROID MEDICINE [Concomitant]

REACTIONS (4)
  - DRUG INEFFECTIVE [None]
  - FEELING COLD [None]
  - FEELING HOT [None]
  - NERVOUSNESS [None]
